FAERS Safety Report 5415579-0 (Version None)
Quarter: 2007Q3

REPORT INFORMATION
  Report Type: 
  Country: None (occurrence: None)
  Receive Date: 20070815
  Receipt Date: 20070814
  Transmission Date: 20080115
  Serious: Yes (Congenital Anomaly, Other)
  Sender: FDA-Public Use
  Company Number: GB-AVENTIS-200717171GDDC

PATIENT

DRUGS (2)
  1. GLYBURIDE [Suspect]
     Dosage: DOSE: UNK
  2. INSULIN [Suspect]
     Dosage: DOSE: UNK

REACTIONS (13)
  - ATRIAL SEPTAL DEFECT [None]
  - BIRTH TRAUMA [None]
  - CLAVICLE FRACTURE [None]
  - HERNIA CONGENITAL [None]
  - HYPERBILIRUBINAEMIA NEONATAL [None]
  - HYPOCALCAEMIA [None]
  - HYPOGLYCAEMIA NEONATAL [None]
  - INTESTINAL ATRESIA [None]
  - MACROSOMIA [None]
  - PATENT DUCTUS ARTERIOSUS [None]
  - POLYCYTHAEMIA [None]
  - SPINE MALFORMATION [None]
  - VENTRICULAR SEPTAL DEFECT [None]
